FAERS Safety Report 8237726-8 (Version None)
Quarter: 2012Q1

REPORT INFORMATION
  Report Type: 
  Country: None (occurrence: None)
  Receive Date: 20120323
  Receipt Date: 20120313
  Transmission Date: 20120608
  Serious: Yes (Other)
  Sender: FDA-Public Use
  Company Number: 2012-025219

PATIENT
  Age: 48 Year
  Sex: Female
  Weight: 59 kg

DRUGS (1)
  1. RID 1-2-3 SYSTEM (PYRETHRIN + PIPERONYL BUTOXIDE) CUTANEOUS SPRAY, SOL [Suspect]
     Indication: LICE INFESTATION
     Dosage: 1 DF, UNK, TOPICAL
     Route: 061
     Dates: start: 20120101

REACTIONS (5)
  - DIZZINESS [None]
  - DYSGEUSIA [None]
  - NAUSEA [None]
  - ACCIDENTAL EXPOSURE [None]
  - COORDINATION ABNORMAL [None]
